FAERS Safety Report 10246535 (Version 1)
Quarter: 2014Q2

REPORT INFORMATION
  Report Type: Spontaneous
  Country: GB (occurrence: None)
  Receive Date: 20140617
  Receipt Date: 20140617
  Transmission Date: 20141212
  Serious: No
  Sender: FDA-Public Use
  Company Number: None

PATIENT
  Age: 36 Year
  Sex: Male
  Weight: 90.72 kg

DRUGS (2)
  1. MALARONE [Suspect]
     Indication: MALARIA
     Dates: start: 20110519, end: 20110601
  2. MALARONE [Suspect]
     Indication: PROPHYLAXIS
     Dates: start: 20110519, end: 20110601

REACTIONS (7)
  - Mouth ulceration [None]
  - Skin irritation [None]
  - Dry skin [None]
  - Skin exfoliation [None]
  - Abnormal dreams [None]
  - Abnormal behaviour [None]
  - Middle insomnia [None]
